FAERS Safety Report 6706657-4 (Version None)
Quarter: 2010Q2

REPORT INFORMATION
  Report Type: 
  Country: None (occurrence: None)
  Receive Date: 20100423
  Receipt Date: 20091208
  Transmission Date: 20101027
  Serious: No
  Sender: FDA-Public Use
  Company Number: ALL1-2009-03967

PATIENT
  Age: 11 Year
  Sex: Male
  Weight: 39 kg

DRUGS (2)
  1. VYVANSE [Suspect]
     Indication: ATTENTION DEFICIT/HYPERACTIVITY DISORDER
     Dosage: 20 MG, 1X/DAY:QD, ORAL; 20 MG, 1X/DAY:QD, ORAL
     Route: 048
     Dates: start: 20090301, end: 20090301
  2. VYVANSE [Suspect]
     Indication: ATTENTION DEFICIT/HYPERACTIVITY DISORDER
     Dosage: 20 MG, 1X/DAY:QD, ORAL; 20 MG, 1X/DAY:QD, ORAL
     Route: 048
     Dates: start: 20090301, end: 20090401

REACTIONS (5)
  - DECREASED APPETITE [None]
  - EMOTIONAL DISTRESS [None]
  - FLAT AFFECT [None]
  - INSOMNIA [None]
  - STRESS [None]
